FAERS Safety Report 7605386-2 (Version None)
Quarter: 2011Q3

REPORT INFORMATION
  Report Type: 
  Country: None (occurrence: None)
  Receive Date: 20110705
  Receipt Date: 20110623
  Transmission Date: 20111222
  Serious: Yes (Life-Threatening, Hospitalization)
  Sender: FDA-Public Use
  Company Number: TCI2011A03616

PATIENT
  Age: 41 Year
  Sex: Male

DRUGS (4)
  1. BAJTAR (SULFAMETHOXAZOLE, TRIMETHOPRIM) [Suspect]
     Indication: PNEUMONIA
     Dosage: 4 TAB (2 TAB, 1 IN 12 HR); NASOGASTRIC TUBE
     Route: 045
     Dates: start: 20110511, end: 20110517
  2. PASIL (PAZUFLOXACIN) [Suspect]
     Indication: PNEUMONIA
     Dosage: 1 GM (0.5 GM, 1 IN 12 HR); INTRAVENOUS DRIP
     Route: 041
     Dates: start: 20110510, end: 20110517
  3. ACTOS [Suspect]
     Indication: DIABETES MELLITUS
     Dosage: 30 MG (30 MG, 1-2 D), PER ORAL
     Route: 048
     Dates: start: 20101229, end: 20110429
  4. ZOSYN [Suspect]
     Indication: PNEUMONIA
     Dosage: 18 GM (4.5 GM, 1 IN 6 HR); INTRAVENOUS DRIP
     Route: 041
     Dates: start: 20110430, end: 20110510

REACTIONS (20)
  - PANCREATITIS ACUTE [None]
  - BLOOD POTASSIUM INCREASED [None]
  - PNEUMONIA [None]
  - GENERALISED OEDEMA [None]
  - HYPOVOLAEMIA [None]
  - ATELECTASIS [None]
  - ELECTROCARDIOGRAM T WAVE ABNORMAL [None]
  - LYMPHOCYTE STIMULATION TEST POSITIVE [None]
  - BLOOD UREA INCREASED [None]
  - CHOLELITHIASIS [None]
  - BLOOD PRESSURE DECREASED [None]
  - CYANOSIS [None]
  - BRADYCARDIA [None]
  - HAEMODIALYSIS [None]
  - HEPATITIS [None]
  - BLOOD CREATININE INCREASED [None]
  - CHOLESTASIS [None]
  - RENAL FAILURE ACUTE [None]
  - ACUTE RESPIRATORY FAILURE [None]
  - JAUNDICE [None]
